FAERS Safety Report 14826625 (Version 4)
Quarter: 2019Q2

REPORT INFORMATION
  Report Type: Spontaneous
  Country: US (occurrence: US)
  Receive Date: 20180430
  Receipt Date: 20190402
  Transmission Date: 20190711
  Serious: Yes (Other)
  Sender: FDA-Public Use
  Company Number: US-ASTRAZENECA-2018SE51129

PATIENT

DRUGS (16)
  1. METOPROLOL TARTRATE. [Concomitant]
     Active Substance: METOPROLOL TARTRATE
  2. LISINOPRIL. [Concomitant]
     Active Substance: LISINOPRIL
  3. ESTRADIOL. [Concomitant]
     Active Substance: ESTRADIOL
  4. PREVACID [Suspect]
     Active Substance: LANSOPRAZOLE
     Route: 065
  5. PRILOSEC OTC [Suspect]
     Active Substance: OMEPRAZOLE MAGNESIUM
     Route: 048
  6. PROTONIX [Suspect]
     Active Substance: PANTOPRAZOLE SODIUM
     Route: 065
  7. DEXILANT [Suspect]
     Active Substance: DEXLANSOPRAZOLE
     Route: 065
  8. CLORAZEPATE DIPOTASSIUM. [Concomitant]
     Active Substance: CLORAZEPATE DIPOTASSIUM
  9. NEXIUM [Suspect]
     Active Substance: ESOMEPRAZOLE MAGNESIUM
     Route: 048
  10. BUPROPION. [Concomitant]
     Active Substance: BUPROPION
  11. NEXIUM 24HR [Suspect]
     Active Substance: ESOMEPRAZOLE MAGNESIUM
     Route: 048
  12. PRILOSEC [Suspect]
     Active Substance: OMEPRAZOLE MAGNESIUM
     Route: 048
  13. FUROSEMIDE. [Concomitant]
     Active Substance: FUROSEMIDE
  14. PREVACID 24 HR [Suspect]
     Active Substance: LANSOPRAZOLE
     Route: 065
  15. LEVOTHROID [Concomitant]
     Active Substance: LEVOTHYROXINE SODIUM
  16. LOVASTATIN. [Concomitant]
     Active Substance: LOVASTATIN

REACTIONS (5)
  - Chronic kidney disease [Unknown]
  - Renal injury [Unknown]
  - Renal haemangioma [Unknown]
  - Renal failure [Unknown]
  - Rebound acid hypersecretion [Unknown]
